FAERS Safety Report 7946538-1 (Version None)
Quarter: 2011Q4

REPORT INFORMATION
  Report Type: 
  Country: None (occurrence: None)
  Receive Date: 20111129
  Receipt Date: 20111125
  Transmission Date: 20120403
  Serious: Yes (Life-Threatening)
  Sender: FDA-Public Use
  Company Number: GB-PFIZER INC-2009157011

PATIENT
  Age: 79 Year
  Sex: Female

DRUGS (9)
  1. ATORVASTATIN CALCIUM [Suspect]
     Dosage: 10 MG, UNK
     Route: 048
  2. FLUTICASONE PROPIONATE/SALMETEROL [Suspect]
     Indication: ASTHMA
     Dosage: 4 DF (INHALED)
     Route: 055
  3. ACETYLSALICYLIC ACID SRT [Suspect]
     Dosage: 75 MG, UNK
     Route: 048
  4. AMLODIPINE BESYLATE [Suspect]
     Dosage: 5 MG, DAILY
     Route: 048
  5. TEMAZEPAM [Suspect]
     Dosage: 20 MG, UNK
     Route: 048
  6. LANSOPRAZOLE [Suspect]
     Dosage: 30 MG, DAILY
     Route: 048
  7. RANITIDINE [Suspect]
     Dosage: 300 MG, UNK
     Route: 048
  8. VALSARTAN [Suspect]
     Dosage: 80 MG, UNK
     Route: 048
  9. VENTOLIN [Suspect]
     Indication: ASTHMA
     Dosage: 800 UG, INHALED
     Route: 055

REACTIONS (2)
  - ASTHMA [None]
  - LOWER RESPIRATORY TRACT INFECTION [None]
